FAERS Safety Report 11998355 (Version 1)
Quarter: 2016Q1

REPORT INFORMATION
  Report Type: Spontaneous
  Country: US (occurrence: None)
  Receive Date: 20160202
  Receipt Date: 20160202
  Transmission Date: 20160526
  Serious: Yes (Other)
  Sender: FDA-Public Use
  Company Number: None

PATIENT
  Age: 7 Year
  Sex: Female
  Weight: 26.3 kg

DRUGS (1)
  1. VPRIV [Suspect]
     Active Substance: VELAGLUCERASE ALFA
     Indication: GAUCHER^S DISEASE TYPE I
     Dosage: 60 UNITS/KG EVERY 2 WEEKS INTRAVENOUS
     Route: 042

REACTIONS (14)
  - Weight bearing difficulty [None]
  - Back pain [None]
  - Educational problem [None]
  - Haemoglobin decreased [None]
  - Emotional disorder [None]
  - Disease recurrence [None]
  - Infusion related reaction [None]
  - Platelet count decreased [None]
  - Bone pain [None]
  - Epistaxis [None]
  - Laboratory test abnormal [None]
  - Pain in extremity [None]
  - Dyspnoea [None]
  - Wheelchair user [None]

NARRATIVE: CASE EVENT DATE: 20151102
